FAERS Safety Report 9128661 (Version 1)
Quarter: 2013Q1

REPORT INFORMATION
  Report Type: Spontaneous
  Country: CA (occurrence: CA)
  Receive Date: 20130125
  Receipt Date: 20130125
  Transmission Date: 20140127
  Serious: Yes (Hospitalization, Disabling)
  Sender: FDA-Public Use
  Company Number: CA-VERTEX PHARMACEUTICALS INC.-2013-001018

PATIENT
  Age: 64 Year
  Sex: Male
  Weight: 67 kg

DRUGS (16)
  1. INCIVEK [Suspect]
     Indication: HEPATITIS C
     Dosage: 750 MG, TID
     Route: 048
  2. PEGASYS [Suspect]
     Indication: HEPATITIS C
     Dosage: UNK
     Route: 058
  3. RIBAVIRIN [Suspect]
     Indication: HEPATITIS C
  4. ALENDRONATE [Concomitant]
  5. CALCIUM [Concomitant]
  6. EPREX [Concomitant]
  7. FERROUS SULPHATE [Concomitant]
  8. GLYBURIDE [Concomitant]
  9. IMODIUM [Concomitant]
  10. LORAZEPAM [Concomitant]
  11. METFORMIN [Concomitant]
  12. NEUPOGEN [Concomitant]
  13. NYSTATIN [Concomitant]
  14. PANTOPRAZOLE [Concomitant]
  15. TESTIM [Concomitant]
     Route: 061
  16. VITAMIN D [Concomitant]

REACTIONS (4)
  - Cachexia [Recovered/Resolved]
  - Neutropenia [Recovered/Resolved]
  - Weight decreased [Recovered/Resolved]
  - Anaemia [Recovered/Resolved]
